FAERS Safety Report 4342762-8 (Version None)
Quarter: 2004Q2

REPORT INFORMATION
  Report Type: 
  Country: None (occurrence: None)
  Receive Date: 20040409
  Receipt Date: 20030813
  Transmission Date: 20050107
  Serious: Yes (Hospitalization)
  Sender: FDA-Public Use
  Company Number: 03P-163-0222620-00

PATIENT
  Age: 86 Year
  Sex: Female

DRUGS (16)
  1. DEPAKOTE [Suspect]
     Indication: AFFECTIVE DISORDER
     Dosage: 250 MG, 2 IN 1 D, PER ORAL
     Route: 048
     Dates: start: 20030601
  2. CARDVEDILOL [Concomitant]
  3. FUROSEMIDE [Concomitant]
  4. POTASSIUM CHLORIDE [Concomitant]
  5. SERTRALINE HYDROCHLORIDE [Concomitant]
  6. PANTOPRAZOLE [Concomitant]
  7. SURFAK [Concomitant]
  8. BENAZEPRIL HCL [Concomitant]
  9. BISACODYL [Concomitant]
  10. LORAZEPAM [Concomitant]
  11. PROPACET 100 [Concomitant]
  12. DOXYLAMINE SUCCINATE [Concomitant]
  13. ISOSORBIDE DINITRATE [Concomitant]
  14. PANTOPRAZOLE [Concomitant]
  15. MAGNESIUM HYDROXIDE TAB [Concomitant]
  16. KCL TAB [Concomitant]

REACTIONS (4)
  - BLOOD POTASSIUM DECREASED [None]
  - CONFUSIONAL STATE [None]
  - DIARRHOEA [None]
  - FAECES DISCOLOURED [None]
